FAERS Safety Report 4456872-8 (Version None)
Quarter: 2004Q3

REPORT INFORMATION
  Report Type: 
  Country: None (occurrence: None)
  Receive Date: 20040921
  Receipt Date: 20040908
  Transmission Date: 20050211
  Serious: Yes (Hospitalization)
  Sender: FDA-Public Use
  Company Number: PERI00204003242

PATIENT
  Age: 57 Year
  Sex: Male

DRUGS (8)
  1. COVERSYL (PERINDOPRIL) [Suspect]
     Indication: CARDIAC FAILURE
     Dosage: PO
     Route: 048
     Dates: start: 20040710, end: 20040804
  2. ALDACTONE [Suspect]
     Indication: ILL-DEFINED DISORDER
     Dosage: PO
     Route: 048
     Dates: start: 20040710, end: 20040804
  3. LASIX [Suspect]
     Indication: ILL-DEFINED DISORDER
     Dosage: DAILY  PO
     Route: 048
     Dates: start: 20040710
  4. ASPIRIN [Suspect]
     Indication: ILL-DEFINED DISORDER
     Dosage: PO
     Route: 048
     Dates: start: 20040710
  5. BISOPROLOL FUMARATE [Suspect]
     Indication: ILL-DEFINED DISORDER
     Dosage: PO
     Route: 048
     Dates: start: 20040710
  6. CORDARONE [Suspect]
     Indication: ILL-DEFINED DISORDER
     Dosage: IV
     Route: 042
     Dates: start: 20040710, end: 20040817
  7. DIAMICRON            (GLICLAZIDE) [Concomitant]
  8. GLUCOPHAGE [Concomitant]

REACTIONS (2)
  - PEMPHIGOID [None]
  - THERAPY NON-RESPONDER [None]
